FAERS Safety Report 5552932-9 (Version None)
Quarter: 2007Q4

REPORT INFORMATION
  Report Type: 
  Country: None (occurrence: None)
  Receive Date: 20071212
  Receipt Date: 20070702
  Transmission Date: 20080405
  Serious: No
  Sender: FDA-Public Use
  Company Number: US-AMGEN-KDL232177

PATIENT
  Sex: Female

DRUGS (3)
  1. ENBREL [Suspect]
     Indication: RHEUMATOID ARTHRITIS
     Route: 058
     Dates: start: 20070621
  2. ARAVA [Concomitant]
     Route: 048
     Dates: start: 20010112
  3. PLAQUENIL [Concomitant]
     Route: 048
     Dates: start: 19900531

REACTIONS (7)
  - BODY TEMPERATURE INCREASED [None]
  - HEADACHE [None]
  - INFLUENZA LIKE ILLNESS [None]
  - MALAISE [None]
  - NAUSEA [None]
  - RESTLESS LEGS SYNDROME [None]
  - SINUS CONGESTION [None]
